FAERS Safety Report 9186894 (Version 1)
Quarter: 2013Q1

REPORT INFORMATION
  Report Type: Spontaneous
  Country: US (occurrence: US)
  Receive Date: 20130325
  Receipt Date: 20130325
  Transmission Date: 20140127
  Serious: Yes (Death)
  Sender: FDA-Public Use
  Company Number: US-GLAXOSMITHKLINE-A0999518A

PATIENT
  Age: 6 Year
  Sex: Female

DRUGS (5)
  1. PROMACTA [Suspect]
     Route: 048
  2. NEXAVAR [Suspect]
     Route: 048
  3. FOLIC ACID [Concomitant]
     Route: 048
  4. MORPHINE [Concomitant]
     Route: 042
  5. METHADONE [Concomitant]
     Route: 048

REACTIONS (1)
  - Death [Fatal]
